FAERS Safety Report 20740394 (Version 2)
Quarter: 2022Q2

REPORT INFORMATION
  Report Type: Spontaneous
  Country: US (occurrence: None)
  Receive Date: 20220422
  Receipt Date: 20220427
  Transmission Date: 20220720
  Serious: No
  Sender: FDA-Public Use
  Company Number: 2022A149468

PATIENT
  Sex: Female
  Weight: 115.7 kg

DRUGS (4)
  1. BYDUREON BCISE [Suspect]
     Active Substance: EXENATIDE
     Indication: Diabetes mellitus
     Route: 058
  2. BACLOFEN [Concomitant]
     Active Substance: BACLOFEN
  3. GABAPENTIN [Concomitant]
     Active Substance: GABAPENTIN
  4. ASPIRIN [Concomitant]
     Active Substance: ASPIRIN

REACTIONS (8)
  - Visual impairment [Unknown]
  - Fine motor skill dysfunction [Unknown]
  - Nervous system disorder [Unknown]
  - Cerebral disorder [Unknown]
  - Weight fluctuation [Unknown]
  - Incorrect dose administered by device [Unknown]
  - Intentional device misuse [Unknown]
  - Device leakage [Unknown]
